FAERS Safety Report 9182121 (Version 1)
Quarter: 2013Q1

REPORT INFORMATION
  Report Type: Spontaneous
  Country: US (occurrence: US)
  Receive Date: 20130322
  Receipt Date: 20130322
  Transmission Date: 20140127
  Serious: Yes (Other)
  Sender: FDA-Public Use
  Company Number: US-PFIZER INC-2013093804

PATIENT
  Sex: Female

DRUGS (2)
  1. LYRICA [Suspect]
     Indication: OSTEOPOROSIS
     Dosage: UNK
  2. LYRICA [Suspect]
     Indication: LIMB DISCOMFORT

REACTIONS (2)
  - Tooth abscess [Unknown]
  - Off label use [Recovered/Resolved]
